FAERS Safety Report 9626081 (Version 1)
Quarter: 2013Q4

REPORT INFORMATION
  Report Type: Spontaneous
  Country: US (occurrence: US)
  Receive Date: 20131016
  Receipt Date: 20131016
  Transmission Date: 20140711
  Serious: Yes (Other)
  Sender: FDA-Public Use
  Company Number: US-SA-2013SA101829

PATIENT
  Age: 60 Year
  Sex: Female

DRUGS (3)
  1. ALLEGRA-D [Suspect]
     Indication: HYPERSENSITIVITY
     Dosage: PRODUCT START DATE-BEEN ON FOR YRS
     Route: 048
  2. ALLEGRA-D [Suspect]
     Indication: NASAL CONGESTION
     Dosage: PRODUCT START DATE-BEEN ON FOR YRS
     Route: 048
  3. VALIUM [Suspect]
     Route: 065

REACTIONS (2)
  - Convulsion [Unknown]
  - Wrong technique in drug usage process [Unknown]
